FAERS Safety Report 7023585-8 (Version None)
Quarter: 2010Q3

REPORT INFORMATION
  Report Type: 
  Country: None (occurrence: None)
  Receive Date: 20100930
  Receipt Date: 20100930
  Transmission Date: 20110219
  Serious: No
  Sender: FDA-Public Use
  Company Number: None

PATIENT
  Age: 71 Year
  Sex: Female
  Weight: 66.2252 kg

DRUGS (3)
  1. SIMVASTATIN [Suspect]
     Indication: KNEE ARTHROPLASTY
     Dosage: SEE IMAGE
     Dates: start: 20100908
  2. SIMVASTATIN [Suspect]
     Indication: PROPHYLAXIS
     Dosage: SEE IMAGE
     Dates: start: 20100908
  3. CEPHALEXIN [Suspect]
     Indication: PROPHYLAXIS
     Dosage: SEE IMAGE
     Dates: start: 20100908

REACTIONS (3)
  - DERMATITIS CONTACT [None]
  - EYE SWELLING [None]
  - URTICARIA [None]
